FAERS Safety Report 9888230 (Version 2)
Quarter: 2014Q1

REPORT INFORMATION
  Report Type: Spontaneous
  Country: GB (occurrence: GB)
  Receive Date: 20140211
  Receipt Date: 20140224
  Transmission Date: 20141002
  Serious: Yes (Disabling, Other)
  Sender: FDA-Public Use
  Company Number: GB-TEVA-460629ISR

PATIENT
  Age: 81 Year
  Sex: Female
  Weight: 69 kg

DRUGS (6)
  1. CO-AMOXICLAV [Suspect]
     Dates: start: 20140123
  2. AMITRIPTYLINE HYDROCHLORIDE [Concomitant]
     Dates: start: 20131002
  3. OMEPRAZOLE [Concomitant]
     Dates: start: 20131002
  4. AMOXICILLIN [Concomitant]
     Dates: start: 20131217, end: 20131224
  5. AMOXICILLIN [Concomitant]
     Dates: start: 20140123
  6. FLUCLOXACILLIN [Concomitant]
     Dates: start: 20140123

REACTIONS (1)
  - Confusional state [Unknown]
